FAERS Safety Report 6551049-4 (Version None)
Quarter: 2010Q1

REPORT INFORMATION
  Report Type: 
  Country: None (occurrence: None)
  Receive Date: 20100122
  Receipt Date: 20100122
  Transmission Date: 20100710
  Serious: Yes (Disabling, Other)
  Sender: FDA-Public Use
  Company Number: None

PATIENT
  Age: 21 Year
  Sex: Female
  Weight: 52.1637 kg

DRUGS (5)
  1. LEVAQUIN [Suspect]
     Indication: MALAISE
     Dosage: 1 TABLET/500 MG 1/DAY, 7 DAYS PO; 1 TABLET/500 MG 1/DAY, 10 DAYS PO
     Route: 048
     Dates: start: 20091116, end: 20091122
  2. LEVAQUIN [Suspect]
     Indication: PNEUMONIA
     Dosage: 1 TABLET/500 MG 1/DAY, 7 DAYS PO; 1 TABLET/500 MG 1/DAY, 10 DAYS PO
     Route: 048
     Dates: start: 20091116, end: 20091122
  3. LEVAQUIN [Suspect]
     Indication: MALAISE
     Dosage: 1 TABLET/500 MG 1/DAY, 7 DAYS PO; 1 TABLET/500 MG 1/DAY, 10 DAYS PO
     Route: 048
     Dates: start: 20091124, end: 20091203
  4. LEVAQUIN [Suspect]
     Indication: PNEUMONIA
     Dosage: 1 TABLET/500 MG 1/DAY, 7 DAYS PO; 1 TABLET/500 MG 1/DAY, 10 DAYS PO
     Route: 048
     Dates: start: 20091124, end: 20091203
  5. HYDROCODONE [Concomitant]

REACTIONS (2)
  - PAIN IN EXTREMITY [None]
  - PRODUCT QUALITY ISSUE [None]
